FAERS Safety Report 12798200 (Version 1)
Quarter: 2016Q3

REPORT INFORMATION
  Report Type: Spontaneous
  Country: US (occurrence: US)
  Receive Date: 20160930
  Receipt Date: 20160930
  Transmission Date: 20161109
  Serious: Yes (Death, Hospitalization)
  Sender: FDA-Public Use
  Company Number: None

PATIENT
  Age: 82 Year
  Sex: Male
  Weight: 81.5 kg

DRUGS (3)
  1. SUNITINIB MALATE (SU011248 L-MALATE) [Suspect]
     Active Substance: SUNITINIB MALATE
     Dates: end: 20160908
  2. SYNTHROID [Concomitant]
     Active Substance: LEVOTHYROXINE SODIUM
  3. COMBIVENT [Concomitant]
     Active Substance: ALBUTEROL SULFATE\IPRATROPIUM BROMIDE

REACTIONS (16)
  - Sepsis [None]
  - Blood lactic acid increased [None]
  - Vomiting [None]
  - Dysgeusia [None]
  - Weight decreased [None]
  - Nausea [None]
  - Diarrhoea [None]
  - Hepatic enzyme increased [None]
  - Mental status changes [None]
  - Blood bicarbonate increased [None]
  - Myocardial infarction [None]
  - Platelet count decreased [None]
  - Heparin-induced thrombocytopenia [None]
  - Hypotension [None]
  - Pneumonia [None]
  - Blood creatinine increased [None]

NARRATIVE: CASE EVENT DATE: 20160909
